FAERS Safety Report 6998044-9 (Version None)
Quarter: 2010Q3

REPORT INFORMATION
  Report Type: 
  Country: None (occurrence: None)
  Receive Date: 20100920
  Receipt Date: 20100106
  Transmission Date: 20110219
  Serious: No
  Sender: FDA-Public Use
  Company Number: US-ASTRAZENECA-2010SE00819

PATIENT
  Age: 24 Year
  Sex: Female

DRUGS (4)
  1. SEROQUEL XR [Suspect]
     Indication: BIPOLAR DISORDER
     Route: 048
     Dates: start: 20091104, end: 20091201
  2. SEROQUEL XR [Suspect]
     Route: 048
  3. WELLBUTRIN [Concomitant]
  4. DEPAKOTE [Concomitant]

REACTIONS (5)
  - ABDOMINAL DISTENSION [None]
  - AMNESIA [None]
  - DRY MOUTH [None]
  - GALACTOSE URINE [None]
  - INSOMNIA [None]
